FAERS Safety Report 12067359 (Version 1)
Quarter: 2016Q1

REPORT INFORMATION
  Report Type: Spontaneous
  Country: NL (occurrence: NL)
  Receive Date: 20160211
  Receipt Date: 20160211
  Transmission Date: 20160526
  Serious: Yes (Hospitalization)
  Sender: FDA-Public Use
  Company Number: NL-ASTRAZENECA-2016SE12027

PATIENT
  Age: 15155 Day
  Sex: Male
  Weight: 185 kg

DRUGS (3)
  1. QUETIAPINE [Suspect]
     Active Substance: QUETIAPINE
     Indication: BURNOUT SYNDROME
     Route: 048
     Dates: start: 20160114, end: 20160127
  2. PURINETHOL [Interacting]
     Active Substance: MERCAPTOPURINE
     Indication: CROHN^S DISEASE
     Route: 048
     Dates: start: 20070701
  3. QUETIAPINE [Interacting]
     Active Substance: QUETIAPINE
     Indication: POOR QUALITY SLEEP
     Route: 048
     Dates: start: 20160114, end: 20160127

REACTIONS (2)
  - Drug interaction [Recovering/Resolving]
  - Hepatitis toxic [Recovering/Resolving]

NARRATIVE: CASE EVENT DATE: 20160120
